FAERS Safety Report 23890764 (Version 1)
Quarter: 2024Q2

REPORT INFORMATION
  Report Type: Spontaneous
  Country: US (occurrence: US)
  Receive Date: 20240523
  Receipt Date: 20240523
  Transmission Date: 20240716
  Serious: No
  Sender: FDA-Public Use
  Company Number: US-TPU-TPU-2024-00184

PATIENT
  Sex: Female

DRUGS (21)
  1. LIDOCAINE [Suspect]
     Active Substance: LIDOCAINE
     Indication: Intervertebral disc protrusion
     Dates: start: 2014
  2. METFORMIN HYDROCHLORIDE [Concomitant]
     Active Substance: METFORMIN HYDROCHLORIDE
  3. LEVOTHYROXINE [Concomitant]
     Active Substance: LEVOTHYROXINE\LEVOTHYROXINE SODIUM
     Dosage: IN THE MORNING
  4. ATORVASTATIN [Concomitant]
     Active Substance: ATORVASTATIN
     Dosage: AT NIGHT
  5. JARDIANCE [Concomitant]
     Active Substance: EMPAGLIFLOZIN
     Dosage: IN THE MORNING
  6. WEGOVY [Concomitant]
     Active Substance: SEMAGLUTIDE
     Dosage: 2.4 MG/0.75 ML
  7. BUPROPION HYDROCHLORIDE XL [Concomitant]
     Active Substance: BUPROPION HYDROCHLORIDE
     Dosage: IN THE MORNING
  8. GABAPENTIN [Concomitant]
     Active Substance: GABAPENTIN
  9. CLONAZEPAM [Concomitant]
     Active Substance: CLONAZEPAM
  10. DOXEPIN [Concomitant]
     Active Substance: DOXEPIN
     Dosage: THREE A TIMES A DAY OR AS NEEDED
  11. SEROQUEL [Concomitant]
     Active Substance: QUETIAPINE FUMARATE
     Dosage: 50 MG IN THE MORNING AND 150 MG ONCE A AT NIGHT
  12. FERROUS SULFATE [Concomitant]
     Active Substance: FERROUS SULFATE
     Dosage: MONDAY, WEDNESDAY, FRIDAY ONLY
  13. Cyanocobalamin B12 [Concomitant]
  14. VITAMIN D3 [Concomitant]
     Active Substance: CHOLECALCIFEROL
  15. LORATADINE [Concomitant]
     Active Substance: LORATADINE
  16. PHENYLEPHRINE [Concomitant]
     Active Substance: PHENYLEPHRINE HYDROCHLORIDE
     Dosage: 1 EVERY 4 HOURS AS NEEDED
  17. VOLTAREN [Concomitant]
     Active Substance: DICLOFENAC SODIUM
     Dosage: APPLY TO AFFECTED AREA TWICE A DAY (KNEES)
     Route: 061
  18. ALBUTEROL SULFATE [Concomitant]
     Active Substance: ALBUTEROL SULFATE
     Indication: Wheezing
     Dosage: 90 MCG ACTUATION INHALER TWO PUFFS EVERY 6 HOURS OR AS NEEDED FOR WHEEZING
  19. XIIDRA [Concomitant]
     Active Substance: LIFITEGRAST
     Dosage: 2 DROPS IN EACH EYE EVERY 12 HOURS
  20. VALACYCLOVIR [Concomitant]
     Active Substance: VALACYCLOVIR HYDROCHLORIDE
     Indication: Blister
     Dosage: AS NEEDED FOR ONSET SENSATION OF NOSE BLISTERS AND COLD SORES
  21. VALACYCLOVIR [Concomitant]
     Active Substance: VALACYCLOVIR HYDROCHLORIDE
     Indication: Oral herpes

REACTIONS (1)
  - Wrong technique in product usage process [Unknown]
